FAERS Safety Report 26108437 (Version 1)
Quarter: 2025Q4

REPORT INFORMATION
  Report Type: Spontaneous
  Country: US (occurrence: None)
  Receive Date: 20251129
  Receipt Date: 20251129
  Transmission Date: 20260117
  Serious: Yes (Hospitalization)
  Sender: FDA-CTU
  Company Number: None

PATIENT
  Age: 83 Year
  Sex: Male
  Weight: 74.25 kg

DRUGS (3)
  1. OHTUVAYRE [Suspect]
     Active Substance: ENSIFENTRINE
     Indication: Chronic obstructive pulmonary disease
     Dosage: 1 MG/ML TWICE A DAY RESPIRATORY (INHALATION)?
     Route: 055
     Dates: start: 20251108, end: 20251126
  2. Formoterol Fumarate 20 mcg/2 mL [Concomitant]
  3. Ipratropium-Albuterol 0.5mg-3mg/2mL [Concomitant]

REACTIONS (1)
  - Dyspnoea [None]

NARRATIVE: CASE EVENT DATE: 20251126
